FAERS Safety Report 4438710-2 (Version None)
Quarter: 2004Q3

REPORT INFORMATION
  Report Type: 
  Country: None (occurrence: None)
  Receive Date: 20040830
  Receipt Date: 20040830
  Transmission Date: 20050211
  Serious: Yes (Hospitalization)
  Sender: FDA-Public Use
  Company Number: None

PATIENT
  Age: 51 Year
  Sex: Female
  Weight: 77 kg

DRUGS (3)
  1. PLAVIX [Suspect]
     Indication: CEREBROVASCULAR ACCIDENT
     Dosage: 75 MG QD ORAL
     Route: 048
     Dates: start: 20040601, end: 20040813
  2. PLAVIX [Suspect]
     Indication: TRANSIENT ISCHAEMIC ATTACK
     Dosage: 75 MG QD ORAL
     Route: 048
     Dates: start: 20040601, end: 20040813
  3. ASPIRIN [Suspect]

REACTIONS (3)
  - HEPATITIS [None]
  - NAUSEA [None]
  - VOMITING [None]
